FAERS Safety Report 4707261-X (Version None)
Quarter: 2005Q3

REPORT INFORMATION
  Report Type: 
  Country: None (occurrence: None)
  Receive Date: 20050701
  Receipt Date: 20050701
  Transmission Date: 20060218
  Serious: Yes (Hospitalization)
  Sender: FDA-Public Use
  Company Number: None

PATIENT
  Age: 70 Year
  Sex: Male

DRUGS (2)
  1. AMIODARONE  200MG [Suspect]
     Indication: ATRIAL FIBRILLATION
     Dosage: 400MG   BID   ORAL
     Route: 048
     Dates: start: 20050513, end: 20050513
  2. AMIODARONE      450MG/3ML [Suspect]
     Indication: ATRIAL FIBRILLATION
     Dosage: 450MG    DRIP    INTRAVENOU
     Route: 041
     Dates: start: 20050516, end: 20050517

REACTIONS (8)
  - ABDOMINAL DISTENSION [None]
  - AGITATION [None]
  - CHOLELITHIASIS [None]
  - CHOLESTASIS [None]
  - CONFUSIONAL STATE [None]
  - HEPATOTOXICITY [None]
  - JAUNDICE [None]
  - LIVER FUNCTION TEST ABNORMAL [None]
